FAERS Safety Report 20693249 (Version 3)
Quarter: 2022Q3

REPORT INFORMATION
  Report Type: Spontaneous
  Country: US (occurrence: US)
  Receive Date: 20220410
  Receipt Date: 20220714
  Transmission Date: 20221026
  Serious: No
  Sender: FDA-Public Use
  Company Number: US-BRISTOL-MYERS SQUIBB COMPANY-2022-015075

PATIENT
  Age: 79 Year
  Sex: Female

DRUGS (2)
  1. POMALYST [Suspect]
     Active Substance: POMALIDOMIDE
     Indication: Plasma cell myeloma
     Route: 048
     Dates: start: 20220522
  2. POMALYST [Suspect]
     Active Substance: POMALIDOMIDE
     Route: 048
     Dates: start: 202203

REACTIONS (8)
  - Depression [Unknown]
  - Nervousness [Unknown]
  - Fatigue [Unknown]
  - Lethargy [Unknown]
  - Paraesthesia [Unknown]
  - Anxiety [Unknown]
  - Pruritus [Unknown]
  - Skin burning sensation [Unknown]
